FAERS Safety Report 19733547 (Version 1)
Quarter: 2021Q3

REPORT INFORMATION
  Report Type: Spontaneous
  Country: CN (occurrence: CN)
  Receive Date: 20210823
  Receipt Date: 20210823
  Transmission Date: 20211014
  Serious: Yes (Other)
  Sender: FDA-Public Use
  Company Number: CN-ROCHE-2891761

PATIENT
  Age: 73 Year
  Sex: Female

DRUGS (9)
  1. PERJETA [Suspect]
     Active Substance: PERTUZUMAB
     Dosage: THP
     Route: 065
     Dates: start: 20210702
  2. PERJETA [Suspect]
     Active Substance: PERTUZUMAB
     Indication: METASTASES TO LYMPH NODES
     Dosage: THP
     Route: 065
  3. DOCETAXEL. [Concomitant]
     Active Substance: DOCETAXEL
     Dosage: THP
     Route: 065
     Dates: start: 20210608
  4. HERCEPTIN [Suspect]
     Active Substance: TRASTUZUMAB
     Dosage: THP
     Route: 065
     Dates: start: 20210608
  5. DOCETAXEL. [Concomitant]
     Active Substance: DOCETAXEL
     Indication: METASTASES TO LYMPH NODES
     Dosage: THP
     Route: 065
     Dates: start: 20210517
  6. HERCEPTIN [Suspect]
     Active Substance: TRASTUZUMAB
     Indication: METASTASES TO LYMPH NODES
     Dosage: THP
     Route: 065
     Dates: start: 20210517
  7. PERJETA [Suspect]
     Active Substance: PERTUZUMAB
     Dosage: THP
     Route: 065
     Dates: start: 20210608
  8. HERCEPTIN [Suspect]
     Active Substance: TRASTUZUMAB
     Dosage: THP
     Route: 065
     Dates: start: 20210702
  9. DOCETAXEL. [Concomitant]
     Active Substance: DOCETAXEL
     Dosage: THP
     Route: 065
     Dates: start: 20210702

REACTIONS (2)
  - White blood cell count decreased [Unknown]
  - Granulocyte count decreased [Unknown]
